FAERS Safety Report 9777388 (Version 2)
Quarter: 2013Q4

REPORT INFORMATION
  Report Type: Report from Study
  Country: CA (occurrence: CA)
  Receive Date: 20131221
  Receipt Date: 20131221
  Transmission Date: 20140711
  Serious: Yes (Hospitalization, Other)
  Sender: FDA-Public Use
  Company Number: PHHY2013CA055337

PATIENT
  Age: 69 Year
  Sex: Female

DRUGS (11)
  1. CLOZARIL [Suspect]
     Indication: SCHIZOPHRENIA
     Dosage: UNK UKN, UNK
     Dates: start: 20061016
  2. PAXIL//PAROXETINE HYDROCHLORIDE [Concomitant]
     Dosage: UNK UKN, UNK
     Dates: end: 201306
  3. PAXIL//PAROXETINE HYDROCHLORIDE [Concomitant]
     Dosage: UNK UKN, UNK
  4. TENORMIN [Concomitant]
     Dosage: UNK UKN, UNK
  5. DOXEPIN [Concomitant]
     Dosage: UNK UKN, UNK
  6. IRON [Concomitant]
     Dosage: UNK UKN, UNK
  7. ATIVAN [Concomitant]
     Dosage: UNK UKN, UNK
  8. SYNTHROID [Concomitant]
     Dosage: UNK UKN, UNK
  9. PANTOLOC//PANTOPRAZOLE SODIUM SESQUIHYDRATE [Concomitant]
     Dosage: UNK UKN, UNK
  10. COLACE [Concomitant]
     Dosage: UNK UKN, UNK
  11. SENOKOT//SENNA ALEXANDRINA [Concomitant]
     Dosage: UNK UKN, UNK

REACTIONS (10)
  - Pneumonia [Recovered/Resolved]
  - Bronchiectasis [Unknown]
  - Idiopathic pulmonary fibrosis [Unknown]
  - Rales [Unknown]
  - Dyspnoea [Unknown]
  - Pulmonary function test abnormal [Unknown]
  - Oxygen saturation decreased [Unknown]
  - Lung infiltration [Unknown]
  - Interstitial lung disease [Unknown]
  - Depression [Unknown]
